FAERS Safety Report 10978613 (Version 1)
Quarter: 2015Q1

REPORT INFORMATION
  Report Type: Report from Study
  Country: PE (occurrence: None)
  Receive Date: 20150331
  Receipt Date: 20150331
  Transmission Date: 20150721
  Serious: Yes (Death)
  Sender: FDA-Public Use
  Company Number: 8018552

PATIENT
  Age: 56 Year
  Sex: Female

DRUGS (1)
  1. EUTIROX (LEVOTHYROXINE SODIUM) [Suspect]
     Active Substance: LEVOTHYROXINE SODIUM
     Indication: HYPOTHYROIDISM
     Dates: start: 20130515, end: 20150120

REACTIONS (1)
  - Cerebrovascular accident [None]
